FAERS Safety Report 22059233 (Version 1)
Quarter: 2023Q1

REPORT INFORMATION
  Report Type: Spontaneous
  Country: US (occurrence: None)
  Receive Date: 20230302
  Receipt Date: 20230302
  Transmission Date: 20230418
  Serious: Yes (Other)
  Sender: FDA-Public Use
  Company Number: None

PATIENT
  Sex: Female

DRUGS (6)
  1. ORENCIA [Suspect]
     Active Substance: ABATACEPT
     Indication: Myopathy
     Dosage: 125 MG/ML SUBCUTANEOUS??INJECT 125 MG UNDER THE SKIN (SUBCUTANEIOUS INJECTION)ONCE WEEKLY
     Dates: start: 20180703
  2. ORENCIA [Suspect]
     Active Substance: ABATACEPT
     Indication: Rheumatoid arthritis
  3. BUPRENORPHIN POW HCL [Concomitant]
  4. DORZOLAMIDE SOL [Concomitant]
  5. LATANOPROST SOL [Concomitant]
  6. METHOTREXATE [Concomitant]
     Active Substance: METHOTREXATE

REACTIONS (3)
  - Postoperative wound infection [None]
  - Impaired healing [None]
  - Therapy interrupted [None]
